FAERS Safety Report 22686691 (Version 5)
Quarter: 2023Q4

REPORT INFORMATION
  Report Type: Spontaneous
  Country: US (occurrence: US)
  Receive Date: 20230710
  Receipt Date: 20231020
  Transmission Date: 20240110
  Serious: Yes (Disabling, Other)
  Sender: FDA-Public Use
  Company Number: US-APELLIS PHARMACEUTICALS-APL-2023-002620

PATIENT
  Sex: Female

DRUGS (4)
  1. SYFOVRE [Suspect]
     Active Substance: PEGCETACOPLAN
     Indication: Dry age-related macular degeneration
     Dosage: 0.1 MILLILITER, QD, OS
     Dates: start: 20230620
  2. EYLEA [Concomitant]
     Active Substance: AFLIBERCEPT
     Indication: Age-related macular degeneration
     Dosage: UNK
     Dates: start: 2020, end: 20230620
  3. SERTRALINE [Concomitant]
     Active Substance: SERTRALINE HYDROCHLORIDE
     Indication: Product used for unknown indication
  4. TRAZODONE [Concomitant]
     Active Substance: TRAZODONE HYDROCHLORIDE
     Indication: Product used for unknown indication

REACTIONS (5)
  - Retinal occlusive vasculitis [Not Recovered/Not Resolved]
  - Blindness [Not Recovered/Not Resolved]
  - Eye excision [Unknown]
  - Corneal oedema [Unknown]
  - Iris neovascularisation [Unknown]

NARRATIVE: CASE EVENT DATE: 20230101
